FAERS Safety Report 4678156-5 (Version None)
Quarter: 2005Q2

REPORT INFORMATION
  Report Type: 
  Country: None (occurrence: None)
  Receive Date: 20050527
  Receipt Date: 20050519
  Transmission Date: 20051028
  Serious: Yes (Death, Hospitalization, Other)
  Sender: FDA-Public Use
  Company Number: 2005059829

PATIENT
  Age: 88 Year
  Sex: Female

DRUGS (4)
  1. CITALOR (ATORVASTATIN) [Suspect]
     Indication: DYSLIPIDAEMIA
     Dosage: 10 MG (10 MG, 1 IN 1 D), ORAL
     Route: 048
     Dates: start: 20000401, end: 20050301
  2. ASPIRIN [Concomitant]
  3. MONOCORDIL (ISOSORBIDE MONONITRATE) [Concomitant]
  4. DERSANE (ALL OTHER THERAPEUTIC PRODUCTS) [Concomitant]

REACTIONS (12)
  - ACCIDENT [None]
  - CARDIAC DISORDER [None]
  - COAGULOPATHY [None]
  - DEMENTIA [None]
  - FALL [None]
  - FEMUR FRACTURE [None]
  - PNEUMONIA [None]
  - POST PROCEDURAL COMPLICATION [None]
  - RENAL DISORDER [None]
  - SCAR [None]
  - SEPSIS [None]
  - THROMBOSIS [None]
